FAERS Safety Report 6832157-7 (Version None)
Quarter: 2010Q3

REPORT INFORMATION
  Report Type: 
  Country: None (occurrence: None)
  Receive Date: 20100712
  Receipt Date: 20100706
  Transmission Date: 20110219
  Serious: Yes (Hospitalization, Other)
  Sender: FDA-Public Use
  Company Number: US-GENZYME-THYM-1001465

PATIENT
  Sex: Female
  Weight: 80 kg

DRUGS (19)
  1. THYMOGLOBULIN [Suspect]
     Indication: PROPHYLAXIS AGAINST TRANSPLANT REJECTION
     Dosage: 125 MG, ONCE
     Route: 042
     Dates: start: 20100306, end: 20100306
  2. THYMOGLOBULIN [Suspect]
     Dosage: 75 MG, ONCE
     Route: 042
     Dates: start: 20100307, end: 20100307
  3. ANESTHETICS, GENERAL [Concomitant]
     Indication: PRODUCT USED FOR UNKNOWN INDICATION
  4. CEFAZOLIN [Concomitant]
     Indication: PRODUCT USED FOR UNKNOWN INDICATION
  5. METHYLPREDNISOLONE ACETATE [Concomitant]
     Indication: IMMUNOSUPPRESSION
     Dosage: 500 MG, ONCE
     Route: 048
     Dates: start: 20100306
  6. METHYLPREDNISOLONE ACETATE [Concomitant]
     Dosage: 200 MG, ONCE
     Route: 048
     Dates: start: 20100306
  7. METHYLPREDNISOLONE ACETATE [Concomitant]
     Dosage: 20 MG, QD
     Route: 048
     Dates: start: 20100306
  8. MYCOPHENOLATE MOFETIL [Concomitant]
     Indication: IMMUNOSUPPRESSION
     Dosage: 1000 MG, Q12HR
     Route: 048
     Dates: start: 20100306
  9. RANID [Concomitant]
     Indication: PROPHYLAXIS
     Dosage: 150 MG, QD
     Route: 048
     Dates: start: 20100307
  10. HEPARIN [Concomitant]
     Indication: THROMBOSIS PROPHYLAXIS
     Dosage: 5000 IU, QDX3
     Route: 058
     Dates: start: 20100307, end: 20100309
  11. COTRIM [Concomitant]
     Indication: INFECTION PROPHYLAXIS
     Dosage: 40 MG, QD
     Route: 048
     Dates: start: 20100307
  12. COTRIM [Concomitant]
     Dosage: 80 MG, QD
     Route: 048
     Dates: start: 20100307
  13. CLOTRIMAZOLE [Concomitant]
     Indication: INFECTION PROPHYLAXIS
     Dosage: 10 MG, TID
     Route: 048
     Dates: start: 20100307
  14. VALGANCICLOVIR [Concomitant]
     Indication: INFECTION PROPHYLAXIS
     Dosage: 450 MG, QOD
     Route: 048
     Dates: start: 20100307
  15. METOPROLOL [Concomitant]
     Indication: BLOOD PRESSURE MANAGEMENT
     Dosage: 5 MG, PRN
     Route: 042
     Dates: start: 20100307, end: 20100309
  16. MORPHINE [Concomitant]
     Indication: PRODUCT USED FOR UNKNOWN INDICATION
  17. BASILIXIMAB [Concomitant]
     Indication: PROPHYLAXIS AGAINST TRANSPLANT REJECTION
     Dosage: UNK
     Dates: start: 20100309
  18. PANTOPRAZOLE [Concomitant]
     Indication: PROPHYLAXIS
  19. TACROLIMUS [Concomitant]
     Indication: IMMUNOSUPPRESSION
     Dosage: 1 MG, Q12HR
     Dates: start: 20100309

REACTIONS (2)
  - HAEMOLYTIC URAEMIC SYNDROME [None]
  - URINARY TRACT INFECTION [None]
